FAERS Safety Report 14859282 (Version 2)
Quarter: 2018Q2

REPORT INFORMATION
  Report Type: Spontaneous
  Country: CZ (occurrence: CZ)
  Receive Date: 20180508
  Receipt Date: 20180523
  Transmission Date: 20180711
  Serious: Yes (Other)
  Sender: FDA-Public Use
  Company Number: CZ-TEVA-2018-CZ-890206

PATIENT
  Age: 58 Year
  Sex: Female
  Weight: 107 kg

DRUGS (2)
  1. METFORMIN [Suspect]
     Active Substance: METFORMIN HYDROCHLORIDE
     Route: 048
  2. PIOGLITAZONE. [Suspect]
     Active Substance: PIOGLITAZONE
     Route: 048

REACTIONS (1)
  - Drug effect decreased [Recovered/Resolved]
